FAERS Safety Report 7294177-0 (Version None)
Quarter: 2011Q1

REPORT INFORMATION
  Report Type: 
  Country: None (occurrence: None)
  Receive Date: 20110215
  Receipt Date: 20110201
  Transmission Date: 20110831
  Serious: Yes (Death, Hospitalization, Other)
  Sender: FDA-Public Use
  Company Number: US-CELGENEUS-163-21880-10120193

PATIENT
  Sex: Male
  Weight: 123.44 kg

DRUGS (27)
  1. CLARITIN [Concomitant]
     Route: 048
  2. PROVENTIL [Concomitant]
     Dosage: 2 PUFFS
     Route: 055
  3. HYDROCHLOROTHIAZIDE [Concomitant]
     Route: 048
  4. FERROUS SULFATE TAB [Concomitant]
     Route: 048
  5. MIRALAX [Concomitant]
     Route: 048
  6. INVANZ [Concomitant]
     Route: 065
  7. NEURONTIN [Concomitant]
     Route: 048
  8. VENTOLIN [Concomitant]
     Route: 055
  9. FIBERCON [Concomitant]
     Route: 048
  10. TYLENOL [Concomitant]
     Route: 048
  11. TIZANIDINE [Concomitant]
     Route: 048
  12. ALENDRONATE SODIUM [Concomitant]
     Route: 048
  13. ZOMETA [Concomitant]
     Route: 065
  14. REVLIMID [Suspect]
     Route: 048
     Dates: start: 20100801
  15. DURAGESIC-50 [Concomitant]
     Route: 062
  16. COUMADIN [Concomitant]
     Route: 048
  17. OMEPRAZOLE MAGNESIUM [Concomitant]
     Route: 048
  18. LEVAQUIN [Concomitant]
     Route: 065
     Dates: start: 20100101
  19. REVLIMID [Suspect]
     Indication: MULTIPLE MYELOMA
     Route: 048
     Dates: start: 20100701
  20. FLUIDS [Concomitant]
     Route: 051
  21. CARAFATE [Concomitant]
     Route: 048
  22. PERCOCET [Concomitant]
     Dosage: 10-650MG
     Route: 048
  23. LISINOPRIL [Concomitant]
     Route: 048
  24. DEXAMETHASONE [Concomitant]
     Indication: MULTIPLE MYELOMA
     Route: 065
  25. COLACE [Concomitant]
     Route: 048
  26. CALTRATE [Concomitant]
     Route: 048
  27. FLUOXETINE [Concomitant]
     Route: 048

REACTIONS (27)
  - DEEP VEIN THROMBOSIS [None]
  - INTERNATIONAL NORMALISED RATIO INCREASED [None]
  - DYSGEUSIA [None]
  - DYSPNOEA [None]
  - ANXIETY [None]
  - HYPERCALCAEMIA [None]
  - ARTHRALGIA [None]
  - MYALGIA [None]
  - PARAESTHESIA [None]
  - RASH MACULO-PAPULAR [None]
  - DEHYDRATION [None]
  - SOMNOLENCE [None]
  - SINUSITIS [None]
  - OEDEMA PERIPHERAL [None]
  - PANCYTOPENIA [None]
  - RENAL IMPAIRMENT [None]
  - INSOMNIA [None]
  - ABDOMINAL PAIN [None]
  - MULTIPLE MYELOMA [None]
  - FATIGUE [None]
  - CONFUSIONAL STATE [None]
  - HYPERHIDROSIS [None]
  - MUSCULAR WEAKNESS [None]
  - DEPRESSION [None]
  - NAUSEA [None]
  - DIARRHOEA [None]
  - CONSTIPATION [None]
